FAERS Safety Report 22060577 (Version 1)
Quarter: 2023Q1

REPORT INFORMATION
  Report Type: Spontaneous
  Country: US (occurrence: None)
  Receive Date: 20230303
  Receipt Date: 20230303
  Transmission Date: 20230417
  Serious: Yes (Life-Threatening, Other)
  Sender: FDA-Public Use
  Company Number: None

PATIENT
  Age: 31 Year
  Sex: Female
  Weight: 61.2 kg

DRUGS (2)
  1. MIFEPRISTONE [Suspect]
     Active Substance: MIFEPRISTONE
     Indication: Abortion induced
     Route: 048
     Dates: start: 20230215, end: 20230215
  2. CYTOTEC [Suspect]
     Active Substance: MISOPROSTOL

REACTIONS (4)
  - Heavy menstrual bleeding [None]
  - Abortion induced [None]
  - Vaginal discharge [None]
  - Vaginal odour [None]

NARRATIVE: CASE EVENT DATE: 20230302
